FAERS Safety Report 5583122-1 (Version None)
Quarter: 2008Q1

REPORT INFORMATION
  Report Type: 
  Country: None (occurrence: None)
  Receive Date: 20080107
  Receipt Date: 20070629
  Transmission Date: 20080703
  Serious: No
  Sender: FDA-Public Use
  Company Number: A0661010A

PATIENT
  Age: 80 Year
  Sex: Female

DRUGS (2)
  1. CIMETIDINE [Suspect]
     Indication: PROPHYLAXIS
     Dosage: 300MG PER DAY
     Route: 048
  2. NAPROSYN [Concomitant]

REACTIONS (1)
  - CONSTIPATION [None]
